FAERS Safety Report 23756043 (Version 1)
Quarter: 2024Q2

REPORT INFORMATION
  Report Type: Spontaneous
  Country: US (occurrence: None)
  Receive Date: 20240418
  Receipt Date: 20240418
  Transmission Date: 20240716
  Serious: Yes (Hospitalization)
  Sender: FDA-Public Use
  Company Number: None

PATIENT
  Age: 67 Year
  Sex: Male

DRUGS (1)
  1. PACERONE [Suspect]
     Active Substance: AMIODARONE HYDROCHLORIDE
     Dates: end: 20230312

REACTIONS (4)
  - Dyspnoea [None]
  - Hypersensitivity pneumonitis [None]
  - Acute respiratory failure [None]
  - Hypothyroidism [None]

NARRATIVE: CASE EVENT DATE: 20230312
